FAERS Safety Report 8927979 (Version 1)
Quarter: 2012Q4

REPORT INFORMATION
  Report Type: Spontaneous
  Country: US (occurrence: None)
  Receive Date: 20121126
  Receipt Date: 20121126
  Transmission Date: 20130627
  Serious: Yes (Other)
  Sender: FDA-Public Use
  Company Number: None

PATIENT
  Age: 63 Year
  Sex: Male
  Weight: 76.2 kg

DRUGS (1)
  1. PROTONIX [Suspect]
     Route: 048
     Dates: start: 20121031

REACTIONS (2)
  - Drug ineffective [None]
  - Gastrooesophageal reflux disease [None]
